FAERS Safety Report 12325817 (Version 1)
Quarter: 2016Q2

REPORT INFORMATION
  Report Type: Spontaneous
  Country: US (occurrence: US)
  Receive Date: 20160503
  Receipt Date: 20160503
  Transmission Date: 20160815
  Serious: Yes (Other)
  Sender: FDA-Public Use
  Company Number: US-CIPLA-2016US04333

PATIENT

DRUGS (2)
  1. ESCITALOPRAM [Suspect]
     Active Substance: ESCITALOPRAM OXALATE
     Dosage: UNK
  2. WARFARIN [Suspect]
     Active Substance: WARFARIN

REACTIONS (3)
  - Intentional product misuse [Unknown]
  - Haemorrhage [Unknown]
  - Overdose [Unknown]
